FAERS Safety Report 11170455 (Version 2)
Quarter: 2015Q2

REPORT INFORMATION
  Report Type: Spontaneous
  Country: US (occurrence: US)
  Receive Date: 20150608
  Receipt Date: 20150617
  Transmission Date: 20150821
  Serious: Yes (Other)
  Sender: FDA-Public Use
  Company Number: US-LPDUSPRD-20150388

PATIENT
  Sex: Female

DRUGS (3)
  1. CYCLOSPORINE INJECTION, USP (866-10) [Suspect]
     Active Substance: CYCLOSPORINE
     Dosage: DOSE NOT PROVIDED
     Route: 065
  2. TACROLIMUS. [Suspect]
     Active Substance: TACROLIMUS
     Dosage: DOSE NOT PROVIDED
     Route: 065
  3. STEROIDS (NOT SPECIFIED) [Suspect]
     Active Substance: UNSPECIFIED INGREDIENT
     Dosage: DOSE NOT PROVIDED
     Route: 065

REACTIONS (2)
  - Hypertrophic cardiomyopathy [Unknown]
  - Hypertension [Unknown]
